FAERS Safety Report 9633251 (Version 3)
Quarter: 2013Q4

REPORT INFORMATION
  Report Type: Spontaneous
  Country: GB (occurrence: None)
  Receive Date: 20131017
  Receipt Date: 20131028
  Transmission Date: 20140711
  Serious: Yes (Life-Threatening, Hospitalization, Disabling)
  Sender: FDA-Public Use
  Company Number: AUR-APL-2013-08545

PATIENT
  Sex: Female

DRUGS (2)
  1. LAMOTRIGINE [Suspect]
     Indication: EPILEPSY
  2. NORETHISTERONE (NORETHISTERONE) [Suspect]
     Indication: MENSTRUAL DISORDER

REACTIONS (3)
  - Jaundice cholestatic [None]
  - Drug-induced liver injury [None]
  - Drug interaction [None]
